FAERS Safety Report 12424742 (Version 1)
Quarter: 2016Q2

REPORT INFORMATION
  Report Type: Spontaneous
  Country: US (occurrence: US)
  Receive Date: 20160601
  Receipt Date: 20160601
  Transmission Date: 20160815
  Serious: No
  Sender: FDA-Public Use
  Company Number: US-BRISTOL-MYERS SQUIBB COMPANY-BMS-2016-041262

PATIENT
  Sex: Female
  Weight: 67.13 kg

DRUGS (1)
  1. ELIQUIS [Suspect]
     Active Substance: APIXABAN
     Indication: PRODUCT USED FOR UNKNOWN INDICATION
     Dosage: UNK
     Route: 065
     Dates: start: 20160204

REACTIONS (4)
  - Abdominal pain upper [Unknown]
  - Musculoskeletal chest pain [Unknown]
  - Oropharyngeal pain [Unknown]
  - Sensation of foreign body [Unknown]
